FAERS Safety Report 5071910-X (Version None)
Quarter: 2006Q3

REPORT INFORMATION
  Report Type: 
  Country: None (occurrence: None)
  Receive Date: 20060804
  Receipt Date: 20060517
  Transmission Date: 20061208
  Serious: Yes (Other)
  Sender: FDA-Public Use
  Company Number: GB-ABBOTT-06P-167-0333639-00

PATIENT
  Sex: Male

DRUGS (10)
  1. HUMIRA [Suspect]
     Indication: RHEUMATOID ARTHRITIS
     Route: 058
     Dates: start: 20050119, end: 20051001
  2. HUMIRA [Suspect]
     Dates: start: 20060101, end: 20060517
  3. CLOPIDOGREL [Concomitant]
     Indication: BLOOD PRESSURE
     Dates: start: 20040101
  4. AMLODIPINE [Concomitant]
     Indication: BLOOD PRESSURE
     Dates: start: 20040101
  5. PREDNISOLONE [Concomitant]
     Indication: ARTHRITIS
     Dates: start: 20040101
  6. DICLOFENAC [Concomitant]
     Indication: DRUG USE FOR UNKNOWN INDICATION
     Dates: start: 20040101
  7. LANSOPRAZOLE [Concomitant]
     Indication: DRUG USE FOR UNKNOWN INDICATION
     Dates: start: 20040101
  8. ACTONELL [Concomitant]
     Indication: DRUG USE FOR UNKNOWN INDICATION
     Dates: start: 20040101
  9. CALCIUM GLUCONATE [Concomitant]
     Indication: DRUG USE FOR UNKNOWN INDICATION
     Dates: start: 20040101
  10. ERGOCALCIFEROL [Concomitant]
     Indication: DRUG USE FOR UNKNOWN INDICATION
     Dates: start: 20040101

REACTIONS (3)
  - ALOPECIA [None]
  - RASH MACULO-PAPULAR [None]
  - RASH PRURITIC [None]
